FAERS Safety Report 11908998 (Version 1)
Quarter: 2016Q1

REPORT INFORMATION
  Report Type: Spontaneous
  Country: US (occurrence: US)
  Receive Date: 20160111
  Receipt Date: 20160111
  Transmission Date: 20160526
  Serious: No
  Sender: FDA-Public Use
  Company Number: US-BIOGEN-2015BI00165332

PATIENT
  Sex: Male

DRUGS (1)
  1. AVONEX [Suspect]
     Active Substance: INTERFERON BETA-1A
     Indication: MULTIPLE SCLEROSIS
     Route: 065

REACTIONS (8)
  - Injury associated with device [Unknown]
  - Malaise [Unknown]
  - Haemorrhage [Unknown]
  - Fear [Unknown]
  - Skin fissures [Unknown]
  - Muscular weakness [Unknown]
  - Dry skin [Unknown]
  - Device difficult to use [Unknown]
